FAERS Safety Report 6087694-2 (Version None)
Quarter: 2009Q1

REPORT INFORMATION
  Report Type: 
  Country: None (occurrence: None)
  Receive Date: 20090223
  Receipt Date: 20090209
  Transmission Date: 20090719
  Serious: Yes (Hospitalization, Other)
  Sender: FDA-Public Use
  Company Number: ES-ROCHE-601176

PATIENT
  Sex: Female
  Weight: 61.4 kg

DRUGS (2)
  1. PEG-INTERFERON ALFA 2A (RO 25-8310) [Suspect]
     Dosage: FORM: SYRINGE, LAST DOSE PRIOR TO SAE: 28 NOV 2008
     Route: 058
     Dates: start: 20080111, end: 20081129
  2. RIBAVIRIN [Suspect]
     Dosage: FORM: 2-0-3 CAPSULES, LAST DOSE PRIOR TO SAE: 28 NOV 2008
     Route: 048
     Dates: start: 20080111, end: 20081129

REACTIONS (3)
  - OBSTRUCTIVE UROPATHY [None]
  - SEPTIC SHOCK [None]
  - UROSEPSIS [None]
